FAERS Safety Report 25998773 (Version 1)
Quarter: 2025Q4

REPORT INFORMATION
  Report Type: Report from Study
  Country: CN (occurrence: CN)
  Receive Date: 20251105
  Receipt Date: 20251105
  Transmission Date: 20260118
  Serious: Yes (Other)
  Sender: ROCHE
  Company Number: CN-ROCHE-10000419836

PATIENT

DRUGS (3)
  1. MYCOPHENOLATE MOFETIL [Suspect]
     Active Substance: MYCOPHENOLATE MOFETIL
     Indication: IgA nephropathy
     Dosage: 1.5-2.0 G/D,  LATER DOSE WAS CHANGED TO 0.75 -1.0 G/DAY AFTER THE SIXTH MONTH IN TWO DIVIDED DOSES O
     Route: 048
  2. PREDNISONE ACETATE [Suspect]
     Active Substance: PREDNISONE ACETATE
     Indication: IgA nephropathy
     Dosage: 0.5 MG-0.8 MG/KG/D, THE MAXIMUM DOSE WAS LESS THAN 60 MG/D, AFTER 2 MONTHS, THE DOSE WAS REDUCED BY
     Route: 065
  3. TELITACICEPT [Suspect]
     Active Substance: TELITACICEPT
     Indication: IgA nephropathy
     Route: 065

REACTIONS (4)
  - Diabetes mellitus inadequate control [Unknown]
  - Nausea [Unknown]
  - Vomiting [Unknown]
  - Off label use [Unknown]
